FAERS Safety Report 21191767 (Version 3)
Quarter: 2022Q3

REPORT INFORMATION
  Report Type: Spontaneous
  Country: BE (occurrence: BE)
  Receive Date: 20220809
  Receipt Date: 20220818
  Transmission Date: 20221027
  Serious: Yes (Other)
  Sender: FDA-Public Use
  Company Number: BE-BAYER-2022P009442

PATIENT
  Age: 50 Year
  Sex: Female

DRUGS (1)
  1. KYLEENA [Suspect]
     Active Substance: LEVONORGESTREL
     Dosage: 17.5?G/DAY
     Route: 015
     Dates: start: 201801, end: 20220728

REACTIONS (4)
  - Device breakage [None]
  - Procedural pain [None]
  - Complication of device removal [None]
  - Device physical property issue [None]

NARRATIVE: CASE EVENT DATE: 20220728
